FAERS Safety Report 4371658-0 (Version None)
Quarter: 2004Q2

REPORT INFORMATION
  Report Type: 
  Country: None (occurrence: None)
  Receive Date: 20040602
  Receipt Date: 20040521
  Transmission Date: 20050107
  Serious: Yes (Other)
  Sender: FDA-Public Use
  Company Number: 9933980

PATIENT
  Age: 55 Year
  Sex: Male
  Weight: 95.2554 kg

DRUGS (10)
  1. NORVASC [Suspect]
     Indication: HYPERTENSION
     Dosage: 5 MG (1 IN 1 D), ORAL
     Route: 048
     Dates: start: 19990513
  2. ATENOLOL [Suspect]
     Indication: ILL-DEFINED DISORDER
     Dosage: ORAL
     Route: 048
     Dates: end: 20030101
  3. BENAZEPRIL HYDROCHLORIDE (BENAZEPRIL HYDROCHLORIED) [Concomitant]
  4. SIMVASTATIN [Concomitant]
  5. DILTIAZEM HYDROCHLORIDE [Concomitant]
  6. TOCOPHEROL CONCENTRATE CAP [Concomitant]
  7. ACETYLSALICYLIC ACID SRT [Concomitant]
  8. METOPROLOL (METOPROLOL) [Concomitant]
  9. LINSEED OIL (LINSEED OIL) [Concomitant]
  10. FISH OIL (FISH OIL) [Concomitant]

REACTIONS (14)
  - ARTHRALGIA [None]
  - BACK DISORDER [None]
  - BLOOD GLUCOSE INCREASED [None]
  - BLOOD PRESSURE INCREASED [None]
  - ERYTHEMA [None]
  - FATIGUE [None]
  - FEELING HOT [None]
  - FEELING HOT AND COLD [None]
  - FLUSHING [None]
  - HEADACHE [None]
  - JOINT SWELLING [None]
  - PHOTOPHOBIA [None]
  - TREATMENT NONCOMPLIANCE [None]
  - VISUAL ACUITY REDUCED [None]
